FAERS Safety Report 5462425-5 (Version None)
Quarter: 2007Q3

REPORT INFORMATION
  Report Type: 
  Country: None (occurrence: None)
  Receive Date: 20070920
  Receipt Date: 20070906
  Transmission Date: 20080115
  Serious: Yes (Other)
  Sender: FDA-Public Use
  Company Number: US-ASTRAZENECA-2006UW02254

PATIENT
  Age: 56 Year
  Sex: Female
  Weight: 88.5 kg

DRUGS (1)
  1. ARIMIDEX [Suspect]
     Indication: BREAST CANCER FEMALE
     Route: 048
     Dates: start: 20040101

REACTIONS (10)
  - ABDOMINAL DISTENSION [None]
  - ARTHRALGIA [None]
  - BLOOD CHOLESTEROL INCREASED [None]
  - BLOOD TRIGLYCERIDES INCREASED [None]
  - INSOMNIA [None]
  - MENISCUS LESION [None]
  - RASH [None]
  - TENDON INJURY [None]
  - TENDONITIS [None]
  - WEIGHT INCREASED [None]
